FAERS Safety Report 7208914-4 (Version None)
Quarter: 2011Q1

REPORT INFORMATION
  Report Type: 
  Country: None (occurrence: None)
  Receive Date: 20110104
  Receipt Date: 20101210
  Transmission Date: 20110831
  Serious: No
  Sender: FDA-Public Use
  Company Number: US-B.I. PHARMACEUTICALS,INC./RIDGEFIELD-2010-BP-14332BP

PATIENT
  Age: 91 Year
  Sex: Female

DRUGS (4)
  1. CALCIUM [Concomitant]
     Indication: MINERAL SUPPLEMENTATION
  2. ACETAMINOPHEN [Concomitant]
     Indication: ARTHRITIS
  3. PRADAXA [Suspect]
     Indication: ATRIAL FIBRILLATION
     Dosage: 300 MG
     Route: 048
     Dates: start: 20101101
  4. AMIODARONE [Concomitant]
     Indication: ATRIAL FIBRILLATION

REACTIONS (2)
  - PRURITUS [None]
  - INSOMNIA [None]
